FAERS Safety Report 19581832 (Version 1)
Quarter: 2021Q3

REPORT INFORMATION
  Report Type: Spontaneous
  Country: IE (occurrence: IE)
  Receive Date: 20210719
  Receipt Date: 20210719
  Transmission Date: 20211014
  Serious: Yes (Other)
  Sender: FDA-Public Use
  Company Number: IE-TEVA-2021-IE-1931574

PATIENT
  Age: 44 Year
  Sex: Female

DRUGS (5)
  1. AJOVY [Suspect]
     Active Substance: FREMANEZUMAB-VFRM
     Indication: MIGRAINE
     Route: 058
     Dates: start: 20210217
  2. UTROGESTAN [Concomitant]
     Active Substance: PROGESTERONE
     Dosage: 100 MILLIGRAM DAILY;
     Route: 048
  3. NUROFEN [Concomitant]
     Active Substance: IBUPROFEN
     Dosage: 600 MILLIGRAM DAILY;
     Route: 048
  4. OESTRODOSE [Concomitant]
     Active Substance: ESTRADIOL
     Dosage: 750 MICROGRAM DAILY;
     Route: 061
  5. SERTRALINE (TEVA) [Concomitant]
     Dosage: 50 MILLIGRAM DAILY;
     Route: 048

REACTIONS (6)
  - Arthralgia [Not Recovered/Not Resolved]
  - Peripheral swelling [Not Recovered/Not Resolved]
  - Joint swelling [Not Recovered/Not Resolved]
  - Contusion [Not Recovered/Not Resolved]
  - Injection site haemorrhage [Not Recovered/Not Resolved]
  - Raynaud^s phenomenon [Not Recovered/Not Resolved]

NARRATIVE: CASE EVENT DATE: 20210217
